FAERS Safety Report 6342029-2 (Version None)
Quarter: 2009Q3

REPORT INFORMATION
  Report Type: 
  Country: None (occurrence: None)
  Receive Date: 20090904
  Receipt Date: 20090828
  Transmission Date: 20100115
  Serious: Yes (Life-Threatening, Hospitalization)
  Sender: FDA-Public Use
  Company Number: BE-ABBOTT-09P-013-0592680-00

PATIENT
  Sex: Female

DRUGS (3)
  1. TEVETEN [Suspect]
     Indication: HYPERTENSION
     Route: 048
     Dates: start: 20080626, end: 20080719
  2. TEVETEN [Suspect]
     Indication: PROPHYLAXIS
  3. INDALARDIE [Concomitant]
     Indication: HYPERTENSION
     Dosage: DAILY
     Dates: start: 20070701

REACTIONS (1)
  - INTESTINAL OBSTRUCTION [None]
